FAERS Safety Report 20406473 (Version 1)
Quarter: 2022Q1

REPORT INFORMATION
  Report Type: Spontaneous
  Country: US (occurrence: None)
  Receive Date: 20220131
  Receipt Date: 20220131
  Transmission Date: 20220423
  Serious: Yes (Disabling)
  Sender: FDA-Public Use
  Company Number: None

PATIENT
  Sex: Female
  Weight: 87.75 kg

DRUGS (9)
  1. DUPIXENT [Suspect]
     Active Substance: DUPILUMAB
     Indication: Eczema
     Dosage: FREQUENCY : EVERY OTHER WEEK;?
     Route: 058
     Dates: start: 20210420, end: 20210905
  2. VITAMINS [Concomitant]
     Active Substance: VITAMINS
  3. MULTI-B [Concomitant]
  4. CALCIUM , MAGNESIUM AND ZINC [Concomitant]
  5. VITAMIN D3 [Concomitant]
     Active Substance: CHOLECALCIFEROL
  6. BLACK COHOSH [Concomitant]
     Active Substance: BLACK COHOSH
  7. BORON [Concomitant]
     Active Substance: BORON
  8. HERBALS\SAW PALMETTO [Concomitant]
     Active Substance: HERBALS\SAW PALMETTO
  9. LORATADINE [Concomitant]
     Active Substance: LORATADINE

REACTIONS (3)
  - Osteoarthritis [None]
  - Gait disturbance [None]
  - Quality of life decreased [None]
